FAERS Safety Report 5524909-0 (Version None)
Quarter: 2007Q4

REPORT INFORMATION
  Report Type: 
  Country: None (occurrence: None)
  Receive Date: 20071119
  Receipt Date: 20070924
  Transmission Date: 20080405
  Serious: Yes (Hospitalization)
  Sender: FDA-Public Use
  Company Number: MPS1-10753

PATIENT
  Age: 7 Year
  Sex: Male
  Weight: 13.4 kg

DRUGS (1)
  1. ALDURAZYME [Suspect]
     Indication: MUCOPOLYSACCHARIDOSIS I
     Dosage: 8.7 MG QWK IV
     Route: 042
     Dates: start: 20030930

REACTIONS (1)
  - ASPIRATION [None]
